FAERS Safety Report 7779183-1 (Version None)
Quarter: 2011Q3

REPORT INFORMATION
  Report Type: 
  Country: None (occurrence: None)
  Receive Date: 20110926
  Receipt Date: 20110915
  Transmission Date: 20111222
  Serious: Yes (Hospitalization, Other)
  Sender: FDA-Public Use
  Company Number: US-ASTRAZENECA-2011SE55927

PATIENT
  Sex: Female

DRUGS (4)
  1. ZESTRIL [Suspect]
     Route: 048
  2. CRESTOR [Suspect]
     Route: 048
  3. AGGRENOX [Concomitant]
  4. NEXIUM [Suspect]
     Route: 048

REACTIONS (4)
  - CORONARY ARTERY OCCLUSION [None]
  - DEMENTIA [None]
  - CEREBROVASCULAR ACCIDENT [None]
  - NEOPLASM MALIGNANT [None]
